FAERS Safety Report 6604976-3 (Version None)
Quarter: 2010Q1

REPORT INFORMATION
  Report Type: 
  Country: None (occurrence: None)
  Receive Date: 20100219
  Receipt Date: 20100210
  Transmission Date: 20100710
  Serious: Yes (Other)
  Sender: FDA-Public Use
  Company Number: 230015J10ARG

PATIENT
  Age: 37 Year
  Sex: Female

DRUGS (1)
  1. REBIF [Suspect]
     Dates: start: 20090901, end: 20091101

REACTIONS (3)
  - CYSTITIS [None]
  - GASTROINTESTINAL INFECTION [None]
  - PNEUMONITIS [None]
